FAERS Safety Report 6472356-X (Version None)
Quarter: 2009Q4

REPORT INFORMATION
  Report Type: 
  Country: None (occurrence: None)
  Receive Date: 20091201
  Receipt Date: 20091116
  Transmission Date: 20100525
  Serious: Yes (Other)
  Sender: FDA-Public Use
  Company Number: 8055024

PATIENT
  Age: 61 Year
  Sex: Male

DRUGS (3)
  1. KEPPRA [Suspect]
     Indication: TRIGEMINAL NEURALGIA
     Dosage: 1000 MG /D PO
     Route: 048
     Dates: start: 20090601, end: 20091030
  2. TEGRETOL [Concomitant]
  3. TRAMADOL HCL [Concomitant]

REACTIONS (2)
  - ARRHYTHMIA [None]
  - BLOOD SODIUM DECREASED [None]
